FAERS Safety Report 7774538-3 (Version None)
Quarter: 2011Q3

REPORT INFORMATION
  Report Type: 
  Country: None (occurrence: None)
  Receive Date: 20110923
  Receipt Date: 20110923
  Transmission Date: 20111222
  Serious: Yes (Hospitalization)
  Sender: FDA-Public Use
  Company Number: None

PATIENT
  Sex: Female

DRUGS (2)
  1. VELCADE [Suspect]
     Indication: MULTIPLE MYELOMA
  2. 2)REVLIMID 3)CORTISONE [Concomitant]
     Indication: MULTIPLE MYELOMA

REACTIONS (3)
  - RENAL FAILURE [None]
  - SEPTIC SHOCK [None]
  - DIABETIC COMA [None]
